FAERS Safety Report 25266537 (Version 1)
Quarter: 2025Q2

REPORT INFORMATION
  Report Type: Spontaneous
  Country: CA (occurrence: CA)
  Receive Date: 20250505
  Receipt Date: 20250505
  Transmission Date: 20250717
  Serious: Yes (Hospitalization)
  Sender: AMGEN
  Company Number: CA-AMGEN-CANSP2025084620

PATIENT
  Age: 63 Year
  Sex: Female
  Weight: 44 kg

DRUGS (1)
  1. PROLIA [Suspect]
     Active Substance: DENOSUMAB
     Indication: Osteoporotic fracture
     Dosage: 60 MILLIGRAM PER MILLILITRE, Q6MO
     Route: 058

REACTIONS (2)
  - Osteonecrosis [Recovered/Resolved with Sequelae]
  - Jaw operation [Recovered/Resolved with Sequelae]
